FAERS Safety Report 5712652-4 (Version None)
Quarter: 2008Q2

REPORT INFORMATION
  Report Type: 
  Country: None (occurrence: None)
  Receive Date: 20080418
  Receipt Date: 20080409
  Transmission Date: 20081010
  Serious: Yes (Other)
  Sender: FDA-Public Use
  Company Number: CHPA2008US05033

PATIENT
  Age: 39 Year
  Sex: Female

DRUGS (1)
  1. NICOTINE  - PRIVATE LABEL -(NICOTINE) TRANS-THERAPEUTIC-SYSTEM [Suspect]
     Indication: SMOKING CESSATION THERAPY
     Dosage: 21 MG, QD, TRANSDERMAL
     Route: 062
     Dates: start: 20080316

REACTIONS (3)
  - BLOOD PRESSURE INCREASED [None]
  - FEELING JITTERY [None]
  - TREATMENT NONCOMPLIANCE [None]
